FAERS Safety Report 5236042-6 (Version None)
Quarter: 2007Q1

REPORT INFORMATION
  Report Type: 
  Country: None (occurrence: None)
  Receive Date: 20070212
  Receipt Date: 20070130
  Transmission Date: 20070707
  Serious: No
  Sender: FDA-Public Use
  Company Number: US-ELI_LILLY_AND_COMPANY-US200701002072

PATIENT
  Age: 57 Year
  Sex: Female

DRUGS (3)
  1. FORTEO [Suspect]
     Dosage: UNK D/F, UNK
     Dates: start: 20060301
  2. FORTEO [Suspect]
     Dosage: UNK D/F, UNK
  3. FORTEO [Suspect]
     Dosage: UNK D/F, UNK

REACTIONS (6)
  - ANKLE FRACTURE [None]
  - ARTHROPATHY [None]
  - FALL [None]
  - FOOT FRACTURE [None]
  - UPPER LIMB FRACTURE [None]
  - WRIST FRACTURE [None]
